FAERS Safety Report 5022547-X (Version None)
Quarter: 2006Q2

REPORT INFORMATION
  Report Type: 
  Country: None (occurrence: None)
  Receive Date: 20060605
  Receipt Date: 20060516
  Transmission Date: 20061013
  Serious: Yes (Hospitalization)
  Sender: FDA-Public Use
  Company Number: FR200605000280

PATIENT
  Age: 73 Year
  Sex: Female

DRUGS (6)
  1. FORTEO [Suspect]
     Indication: OSTEOPOROSIS
     Dosage: 20 UG, DAILY (1/D); SUBCUTANEOUS
     Route: 058
     Dates: start: 20060327, end: 20060428
  2. FORTEO [Concomitant]
  3. FENOFIBRATE [Concomitant]
  4. ALDACTAZINE (ALTIZIDE, SPIRONOLACTONE) [Concomitant]
  5. ANAFRANIL [Concomitant]
  6. BROMAZEPAM [Concomitant]

REACTIONS (1)
  - PULMONARY EMBOLISM [None]
